FAERS Safety Report 13895812 (Version 1)
Quarter: 2017Q3

REPORT INFORMATION
  Report Type: Spontaneous
  Country: US (occurrence: None)
  Receive Date: 20170822
  Receipt Date: 20170822
  Transmission Date: 20171127
  Serious: No
  Sender: FDA-Public Use
  Company Number: None

PATIENT
  Age: 31 Year
  Sex: Female

DRUGS (1)
  1. HUMIRA [Suspect]
     Active Substance: ADALIMUMAB
     Indication: PSORIASIS
     Dosage: 80MG DAY 1; 40MG DAY 8; 40MG EVERY DAY 1, DAY 8, EVERY OTHER WEEK SUBCUTANEOUSLY
     Route: 058
     Dates: start: 20170515, end: 20170605

REACTIONS (2)
  - Pruritus [None]
  - Paraesthesia [None]

NARRATIVE: CASE EVENT DATE: 20170715
